FAERS Safety Report 8051586-X (Version None)
Quarter: 2012Q1

REPORT INFORMATION
  Report Type: 
  Country: None (occurrence: None)
  Receive Date: 20120118
  Receipt Date: 20120112
  Transmission Date: 20120608
  Serious: Yes (Other)
  Sender: FDA-Public Use
  Company Number: JO-BIOGENIDEC-2011BI025684

PATIENT
  Age: 47 Year
  Sex: Female

DRUGS (6)
  1. TYSABRI [Suspect]
     Route: 042
     Dates: start: 20110919
  2. TYSABRI [Suspect]
     Indication: RELAPSING-REMITTING MULTIPLE SCLEROSIS
     Route: 042
     Dates: start: 20110418, end: 20110613
  3. GLUCOPHAGE [Concomitant]
  4. MITOXANTRONE [Concomitant]
  5. AMARYL [Concomitant]
  6. CORTICOSTEROID [Concomitant]

REACTIONS (3)
  - PAIN IN EXTREMITY [None]
  - PSYCHOSOMATIC DISEASE [None]
  - ANXIETY [None]
